FAERS Safety Report 6960041-7 (Version None)
Quarter: 2010Q3

REPORT INFORMATION
  Report Type: 
  Country: None (occurrence: None)
  Receive Date: 20100901
  Receipt Date: 20100820
  Transmission Date: 20110219
  Serious: Yes (Other)
  Sender: FDA-Public Use
  Company Number: PHHY2010US55278

PATIENT

DRUGS (21)
  1. TEGRETOL [Suspect]
     Indication: MOOD SWINGS
     Dosage: 400 MG, UNK
     Route: 048
  2. BACLOFEN [Suspect]
     Indication: RESTLESS LEGS SYNDROME
     Dosage: 20 MG, TID
     Route: 048
  3. VITAMIN E [Suspect]
     Dosage: UNK
  4. LYRICA [Suspect]
     Indication: FIBROMYALGIA
     Dosage: 150 MG, TID
     Route: 048
  5. LISINOPRIL [Suspect]
     Indication: BLOOD PRESSURE INCREASED
     Dosage: 10 MG, DAILY
     Route: 048
  6. FLUTICASONE PROPIONATE [Suspect]
     Indication: NASAL SEPTUM DEVIATION
     Dosage: UNK
     Route: 045
     Dates: start: 20100101
  7. SIMVASTATIN [Suspect]
     Indication: BLOOD CHOLESTEROL INCREASED
     Dosage: 40 MG, DAILY
     Route: 048
  8. MELOXICAM [Suspect]
     Indication: PAIN
     Dosage: 15 MG, BID
     Route: 048
  9. CETIRIZINE HCL [Suspect]
     Indication: HYPERSENSITIVITY
     Dosage: 10 MG, DAILY
     Route: 048
  10. ASPIRIN [Suspect]
     Indication: CARDIAC DISORDER
     Dosage: 81 MG, DAILY
     Route: 048
  11. LEVOTHYROXINE SODIUM [Suspect]
     Indication: THYROID DISORDER
     Dosage: 50 MCG, DAILY
     Route: 048
  12. PROVIGIL [Suspect]
     Indication: SLEEP APNOEA SYNDROME
     Dosage: 200 MG, DAILY
     Route: 048
  13. PROPRANOLOL [Suspect]
     Indication: BLOOD PRESSURE INCREASED
     Dosage: 20 MG, BID
     Route: 048
  14. METHOCARBAMOL [Suspect]
     Indication: PAIN
     Dosage: 500 MG, BID
     Route: 048
  15. METHADOSE [Suspect]
     Dosage: 10 MG, 5QD
     Route: 048
  16. CYMBALTA [Suspect]
     Indication: DEPRESSION
     Dosage: 60 MG, BID
     Route: 048
  17. OMEPRAZOLE [Suspect]
     Indication: GASTROOESOPHAGEAL REFLUX DISEASE
     Dosage: 40 MG, DAILY
     Route: 048
  18. LIDODERM [Suspect]
     Indication: MYALGIA
     Dosage: UNK
     Route: 062
  19. INSULIN DETEMIR [Suspect]
     Indication: DIABETES MELLITUS
     Dosage: 47 UNITS IN AM
  20. MIRALAX [Suspect]
     Indication: CONSTIPATION
     Dosage: 17 G, DAILY
     Route: 048
  21. FISH OIL [Suspect]
     Dosage: UNK

REACTIONS (2)
  - CONVULSION [None]
  - FIBROMYALGIA [None]
